FAERS Safety Report 6140237-7 (Version None)
Quarter: 2009Q2

REPORT INFORMATION
  Report Type: 
  Country: None (occurrence: None)
  Receive Date: 20090401
  Receipt Date: 19940325
  Transmission Date: 20091009
  Serious: Yes (Other)
  Sender: FDA-Public Use
  Company Number: US-BAXTER-2009BH003331

PATIENT
  Age: 4 Year
  Sex: Female

DRUGS (1)
  1. GAMMAGARD [Suspect]
     Indication: SECONDARY IMMUNODEFICIENCY
     Route: 065
     Dates: start: 19920801, end: 19940201

REACTIONS (3)
  - ABDOMINAL PAIN [None]
  - LIVER ABSCESS [None]
  - LIVER DISORDER [None]
